FAERS Safety Report 8824538 (Version 2)
Quarter: 2012Q4

REPORT INFORMATION
  Report Type: 
  Country: US (occurrence: US)
  Receive Date: 20121004
  Receipt Date: 20121102
  Transmission Date: 20130627
  Serious: Yes (Other)
  Sender: FDA-Public Use
  Company Number: PHEH2012US019010

PATIENT
  Sex: Female

DRUGS (6)
  1. DIOVAN [Suspect]
  2. INDAPAMIDE [Suspect]
  3. GLIPIZIDE [Suspect]
  4. CARDURA [Suspect]
  5. HYDROCODONE [Suspect]
  6. ASPIRINA [Suspect]

REACTIONS (2)
  - Diabetes mellitus [Unknown]
  - Arthritis [Unknown]
